FAERS Safety Report 15218430 (Version 3)
Quarter: 2019Q1

REPORT INFORMATION
  Report Type: Report from Study
  Country: None (occurrence: US)
  Receive Date: 20180730
  Receipt Date: 20190225
  Transmission Date: 20190417
  Serious: Yes (Hospitalization, Other)
  Sender: FDA-Public Use
  Company Number: US-ABBVIE-18K-163-2435662-00

PATIENT
  Age: 39 Year
  Sex: Female
  Weight: 49.03 kg

DRUGS (2)
  1. REMICADE [Suspect]
     Active Substance: INFLIXIMAB
     Indication: PRODUCT USED FOR UNKNOWN INDICATION
     Route: 042
     Dates: start: 201812, end: 201812
  2. HUMIRA [Suspect]
     Active Substance: ADALIMUMAB
     Indication: CROHN^S DISEASE
     Route: 058
     Dates: start: 2008, end: 201810

REACTIONS (12)
  - Drug hypersensitivity [Recovered/Resolved]
  - Small intestinal obstruction [Recovered/Resolved]
  - Urticaria [Recovered/Resolved]
  - Crohn^s disease [Recovered/Resolved]
  - Pyrexia [Recovered/Resolved]
  - Gastrointestinal obstruction [Recovered/Resolved]
  - Drug specific antibody present [Not Recovered/Not Resolved]
  - Small intestinal obstruction [Recovered/Resolved]
  - Allergic oedema [Recovered/Resolved]
  - Drug effect decreased [Not Recovered/Not Resolved]
  - Type IV hypersensitivity reaction [Recovered/Resolved]
  - Crohn^s disease [Not Recovered/Not Resolved]

NARRATIVE: CASE EVENT DATE: 2018
